FAERS Safety Report 6653109-6 (Version None)
Quarter: 2010Q1

REPORT INFORMATION
  Report Type: 
  Country: None (occurrence: None)
  Receive Date: 20100326
  Receipt Date: 20100322
  Transmission Date: 20100710
  Serious: Yes (Hospitalization, Other)
  Sender: FDA-Public Use
  Company Number: PHEH2008US04551

PATIENT
  Sex: Male

DRUGS (28)
  1. ZOMETA [Suspect]
     Indication: BONE DENSITY DECREASED
     Dosage: 4 MG, QMO
     Dates: start: 20040920, end: 20060725
  2. AVASTIN [Suspect]
     Indication: METASTATIC RENAL CELL CARCINOMA
     Dosage: 800 MG, EVERY OTHER WEEK
     Route: 042
     Dates: start: 20040920
  3. THALIDOMIDE [Suspect]
     Dosage: 400 MG, QD
     Route: 048
     Dates: start: 20040101
  4. SUTENT [Suspect]
     Dosage: UNK
  5. GEMCITABINE HCL [Suspect]
  6. DILANTIN                                /AUS/ [Concomitant]
     Indication: CONVULSION
     Dosage: 400 MG, QD
  7. DECADRON [Concomitant]
     Dosage: 4 MG, QID
     Route: 048
  8. ROXANOL [Concomitant]
     Dosage: 0.5 TO 2 ML EVERY 2 TO 3 HOURS, PRN
     Route: 048
  9. COLACE [Concomitant]
     Dosage: 100 MG, BID
     Route: 048
  10. MILK OF MAGNESIA TAB [Concomitant]
     Dosage: 30 ML, PRN
     Route: 048
  11. AMBIEN [Concomitant]
     Dosage: 10 MG, PRN
  12. TEMSIROLIMUS [Concomitant]
     Dosage: UNK
     Dates: start: 20071218
  13. M.V.I. [Concomitant]
  14. DULCOLAX [Concomitant]
     Dosage: 10 MG, PRN
     Route: 054
  15. VITAMINS [Concomitant]
  16. TYLENOL-500 [Concomitant]
     Indication: PAIN
  17. ADVIL LIQUI-GELS [Concomitant]
     Indication: PAIN
  18. TORISEL [Suspect]
  19. LEVAQUIN [Concomitant]
  20. CELEBREX [Concomitant]
  21. SOMA [Concomitant]
  22. HYDROCODONE [Concomitant]
     Indication: PAIN
     Dosage: UNK
  23. PERIDEX [Concomitant]
  24. IBUPROFEN [Concomitant]
     Dosage: 800 MG, UNK
  25. VICODIN [Concomitant]
     Dosage: UNK
     Route: 048
  26. DEXAMETHASONE [Concomitant]
     Dosage: 4 MG, TID
     Route: 048
  27. LASIX [Concomitant]
     Dosage: 40 MG, QD
     Route: 048
  28. ZOFRAN [Concomitant]
     Dosage: 8 MG, PRN
     Route: 048

REACTIONS (75)
  - ABASIA [None]
  - ADRENAL GLAND CANCER METASTATIC [None]
  - ANAEMIA [None]
  - ANGER [None]
  - ANHEDONIA [None]
  - ANXIETY [None]
  - ASPIRATION PLEURAL CAVITY [None]
  - BACK PAIN [None]
  - BLOOD TESTOSTERONE DECREASED [None]
  - BONE DENSITY DECREASED [None]
  - BONE DISORDER [None]
  - BONE MARROW FAILURE [None]
  - CARDIAC FAILURE CONGESTIVE [None]
  - CARDIOMEGALY [None]
  - CENTRAL NERVOUS SYSTEM LESION [None]
  - CONSTIPATION [None]
  - CONVULSION [None]
  - DECREASED APPETITE [None]
  - DEPRESSION [None]
  - DIARRHOEA [None]
  - DISABILITY [None]
  - DRUG TOXICITY [None]
  - DYSKINESIA [None]
  - DYSPHAGIA [None]
  - FATIGUE [None]
  - GINGIVAL ULCERATION [None]
  - HAEMATOCRIT DECREASED [None]
  - HAEMATURIA [None]
  - HEADACHE [None]
  - HYPOAESTHESIA [None]
  - IMMUNOSUPPRESSION [None]
  - INJURY [None]
  - INSPIRATORY CAPACITY DECREASED [None]
  - LOOSE TOOTH [None]
  - LOSS OF PROPRIOCEPTION [None]
  - LUNG DISORDER [None]
  - LYMPHADENOPATHY MEDIASTINAL [None]
  - MALIGNANT NEOPLASM PROGRESSION [None]
  - MASS [None]
  - MASTICATION DISORDER [None]
  - METASTASES TO BONE [None]
  - METASTASES TO CENTRAL NERVOUS SYSTEM [None]
  - METASTASES TO LIVER [None]
  - METASTASES TO SPINE [None]
  - METASTASES TO THE MEDIASTINUM [None]
  - MOUTH ULCERATION [None]
  - MUSCLE SPASMS [None]
  - MUSCULOSKELETAL CHEST PAIN [None]
  - MYALGIA [None]
  - NAUSEA [None]
  - NEPHRECTOMY [None]
  - NEUROPATHY PERIPHERAL [None]
  - NEUTROPENIA [None]
  - ORAL PAIN [None]
  - OSTEOMYELITIS [None]
  - OSTEONECROSIS [None]
  - PAIN [None]
  - PAIN IN JAW [None]
  - PALMAR-PLANTAR ERYTHRODYSAESTHESIA SYNDROME [None]
  - PEYRONIE'S DISEASE [None]
  - PLEURAL EFFUSION [None]
  - PROTEINURIA [None]
  - PYREXIA [None]
  - RENAL CANCER METASTATIC [None]
  - SINUS DISORDER [None]
  - SINUSITIS [None]
  - SOFT TISSUE DISORDER [None]
  - SOMNOLENCE [None]
  - SPINAL COMPRESSION FRACTURE [None]
  - SPINAL CORD COMPRESSION [None]
  - TONGUE ULCERATION [None]
  - UPPER RESPIRATORY TRACT INFECTION [None]
  - VERTEBROPLASTY [None]
  - VISUAL IMPAIRMENT [None]
  - WEIGHT DECREASED [None]
